FAERS Safety Report 6547783-2 (Version None)
Quarter: 2010Q1

REPORT INFORMATION
  Report Type: 
  Country: None (occurrence: None)
  Receive Date: 20100124
  Receipt Date: 20091006
  Transmission Date: 20100710
  Serious: No
  Sender: FDA-Public Use
  Company Number: US-ALEXION-A200900312

PATIENT
  Sex: Female

DRUGS (4)
  1. SOLIRIS [Suspect]
     Indication: PAROXYSMAL NOCTURNAL HAEMOGLOBINURIA
     Dosage: 600 MG, QW
     Route: 042
     Dates: start: 20080328, end: 20080418
  2. SOLIRIS [Suspect]
     Dosage: 900 MG, Q2W
     Route: 042
     Dates: start: 20080425
  3. COUMADIN [Suspect]
     Indication: ANTICOAGULANT THERAPY
     Dosage: 10 MG, QOD
     Route: 048
  4. COUMADIN [Suspect]
     Dosage: 5 MG, QOD
     Route: 048

REACTIONS (4)
  - BACK PAIN [None]
  - CONTUSION [None]
  - FATIGUE [None]
  - SENSATION OF HEAVINESS [None]
